FAERS Safety Report 6466577-X (Version None)
Quarter: 2009Q4

REPORT INFORMATION
  Report Type: 
  Country: None (occurrence: None)
  Receive Date: 20091127
  Receipt Date: 20091116
  Transmission Date: 20100525
  Serious: No
  Sender: FDA-Public Use
  Company Number: DSU-2009-02606

PATIENT
  Age: 60 Year
  Sex: Female
  Weight: 68.0396 kg

DRUGS (6)
  1. WELCHOL [Suspect]
     Indication: DIARRHOEA
     Dosage: 2500 MG (1250 MG, BID), PER ORAL
     Route: 048
     Dates: start: 20091105
  2. ROBINUL (GLYCOPYRRONIUM BROMIDE) (GLYCOPYRRONIUM BROMIDE) [Concomitant]
  3. TOPROL XL (METOPROLOL SUCCINATE) (100 MILLIGRAM) (METOPROLOL SUCCINATE [Concomitant]
  4. LISINOPRIL [Concomitant]
  5. AMBIEN [Concomitant]
  6. PROBIOTICS (LACTOBACILLUS REUTERI) (LACTOBACILLUS REUTERI) [Concomitant]

REACTIONS (3)
  - DYSPHAGIA [None]
  - FOREIGN BODY [None]
  - PRODUCT SIZE ISSUE [None]
